FAERS Safety Report 5284762-X (Version None)
Quarter: 2007Q2

REPORT INFORMATION
  Report Type: 
  Country: None (occurrence: None)
  Receive Date: 20070403
  Receipt Date: 20070329
  Transmission Date: 20071010
  Serious: Yes (Other)
  Sender: FDA-Public Use
  Company Number: PT-MERCK-0703PRT00014

PATIENT
  Age: 80 Year
  Sex: Female

DRUGS (5)
  1. VYTORIN [Suspect]
     Route: 048
     Dates: start: 20070101
  2. OXAZEPAM [Concomitant]
     Route: 065
  3. INDAPAMIDE [Concomitant]
     Route: 065
  4. DIOSMIN [Concomitant]
     Route: 065
  5. NIMESULIDE [Concomitant]
     Route: 065

REACTIONS (7)
  - ABDOMINAL PAIN UPPER [None]
  - BLOOD BILIRUBIN INCREASED [None]
  - CHOLESTASIS [None]
  - JAUNDICE [None]
  - PRURITUS [None]
  - TRANSAMINASES INCREASED [None]
  - VOMITING [None]
